FAERS Safety Report 4690115-5 (Version None)
Quarter: 2005Q2

REPORT INFORMATION
  Report Type: 
  Country: None (occurrence: None)
  Receive Date: 20050613
  Receipt Date: 20050428
  Transmission Date: 20051028
  Serious: Yes (Hospitalization)
  Sender: FDA-Public Use
  Company Number: 6014538

PATIENT
  Age: 63 Year
  Sex: Male

DRUGS (2)
  1. DETENSIEL (TABLET) (BISOPROLOL FUMARATE) [Suspect]
     Indication: ESSENTIAL HYPERTENSION
     Dosage: 1 DOSAGE, ORAL
     Route: 048
     Dates: start: 20050223
  2. STILNOX (10 MG, TABLET) (ZOLPIDEM) [Suspect]
     Indication: SLEEP DISORDER
     Dosage: 1 DOSAGE, ORAL
     Route: 048
     Dates: start: 20031208

REACTIONS (8)
  - DRUG INEFFECTIVE [None]
  - ECZEMA [None]
  - EYELID DISORDER [None]
  - EYELIDS PRURITUS [None]
  - IMPETIGO [None]
  - PSORIASIS [None]
  - PUSTULAR PSORIASIS [None]
  - TOXIC SKIN ERUPTION [None]
